FAERS Safety Report 5945579-3 (Version None)
Quarter: 2008Q4

REPORT INFORMATION
  Report Type: 
  Country: None (occurrence: None)
  Receive Date: 20081107
  Receipt Date: 20081027
  Transmission Date: 20090506
  Serious: Yes (Other)
  Sender: FDA-Public Use
  Company Number: JP-PFIZER INC-2008091173

PATIENT
  Age: 35 Year
  Sex: Female

DRUGS (5)
  1. CHAMPIX [Suspect]
     Indication: SMOKING CESSATION THERAPY
     Dosage: DAILY DOSE:1MG
     Route: 048
     Dates: start: 20081016, end: 20081021
  2. FLUVOXAMINE MALEATE [Concomitant]
     Route: 048
  3. HALCION [Concomitant]
     Route: 048
  4. EURODIN [Concomitant]
     Route: 048
  5. DEPAS [Concomitant]
     Route: 048

REACTIONS (4)
  - DEPRESSIVE SYMPTOM [None]
  - DYSSTASIA [None]
  - HYPERPHAGIA [None]
  - IRRITABILITY [None]
